FAERS Safety Report 9400014 (Version 2)
Quarter: 2013Q3

REPORT INFORMATION
  Report Type: Spontaneous
  Country: JP (occurrence: JP)
  Receive Date: 20130715
  Receipt Date: 20130814
  Transmission Date: 20140515
  Serious: No
  Sender: FDA-Public Use
  Company Number: JP-ASTRAZENECA-2013SE52273

PATIENT
  Age: 87 Year
  Sex: Female

DRUGS (12)
  1. SEROQUEL [Suspect]
     Route: 048
     Dates: start: 20130630
  2. LIPITOR [Suspect]
     Route: 048
  3. ARTIST [Suspect]
     Route: 048
  4. ETHYL ICOSAPENTATE [Suspect]
     Route: 048
  5. CALBLOCK [Suspect]
     Route: 048
  6. PANTOSIN [Suspect]
     Route: 048
  7. PLAVIX [Suspect]
     Route: 048
  8. MAGMITT [Suspect]
     Route: 048
  9. AZILSARTAN [Suspect]
     Route: 048
  10. EURODIN [Suspect]
     Route: 048
     Dates: start: 2013
  11. LENDORMIN [Suspect]
     Route: 048
     Dates: start: 2013
  12. ROZEREM [Suspect]
     Route: 048
     Dates: start: 2013

REACTIONS (2)
  - Hepatic function abnormal [Recovered/Resolved]
  - Intentional drug misuse [Unknown]
